FAERS Safety Report 18370694 (Version 1)
Quarter: 2020Q4

REPORT INFORMATION
  Report Type: Spontaneous
  Country: DE (occurrence: DE)
  Receive Date: 20201012
  Receipt Date: 20201012
  Transmission Date: 20210114
  Serious: Yes (Life-Threatening)
  Sender: FDA-Public Use
  Company Number: DE-BAYER-2020-212839

PATIENT
  Age: 69 Year
  Sex: Female

DRUGS (6)
  1. GADOBUTROL. [Suspect]
     Active Substance: GADOBUTROL
     Dosage: 2 ML, ONCE
     Route: 037
  2. PREDNISOLONE. [Concomitant]
     Active Substance: PREDNISOLONE
     Dosage: UNK
  3. NACL [Concomitant]
     Active Substance: SODIUM CHLORIDE
     Dosage: 2 ML
  4. RANITIDINE. [Concomitant]
     Active Substance: RANITIDINE
     Dosage: 50 MG
  5. LORAZEPAM. [Concomitant]
     Active Substance: LORAZEPAM
     Dosage: 1 MG
  6. DIMENHYDRINATE. [Concomitant]
     Active Substance: DIMENHYDRINATE
     Dosage: 62 MG

REACTIONS (3)
  - Encephalopathy [None]
  - Cardiac arrest [None]
  - Incorrect route of product administration [None]
